FAERS Safety Report 20802414 (Version 1)
Quarter: 2022Q2

REPORT INFORMATION
  Report Type: Spontaneous
  Country: US (occurrence: None)
  Receive Date: 20220506
  Receipt Date: 20220506
  Transmission Date: 20220721
  Serious: Yes (Hospitalization)
  Sender: FDA-Public Use
  Company Number: None

PATIENT
  Age: 44 Year
  Sex: Male

DRUGS (9)
  1. REPATHA [Suspect]
     Active Substance: EVOLOCUMAB
     Indication: Hyperlipidaemia
     Dosage: OTHER FREQUENCY : EVERY OTHER WEEK;?
     Route: 058
     Dates: start: 20210125
  2. CARVEDILOL [Concomitant]
     Active Substance: CARVEDILOL
  3. lipitor 80 mg [Concomitant]
  4. brillinta 90 mg [Concomitant]
  5. LISINOPRIL [Concomitant]
     Active Substance: LISINOPRIL
  6. ASPIRIN [Concomitant]
     Active Substance: ASPIRIN
  7. EZETIMIBE [Concomitant]
     Active Substance: EZETIMIBE
  8. VITAMINS [Concomitant]
     Active Substance: VITAMINS
  9. vitamin b-12 100 mcg [Concomitant]

REACTIONS (1)
  - Coronary arterial stent insertion [None]

NARRATIVE: CASE EVENT DATE: 20220425
